FAERS Safety Report 10886500 (Version 1)
Quarter: 2015Q1

REPORT INFORMATION
  Report Type: Spontaneous
  Country: US (occurrence: None)
  Receive Date: 20150227
  Receipt Date: 20150227
  Transmission Date: 20150721
  Serious: Yes (Hospitalization)
  Sender: FDA-Public Use
  Company Number: None

PATIENT
  Age: 70 Year
  Sex: Male

DRUGS (2)
  1. ERIBULIN [Suspect]
     Active Substance: ERIBULIN
     Indication: NEOPLASM MALIGNANT
     Route: 042
     Dates: start: 20150209
  2. CETUXIMAB [Suspect]
     Active Substance: CETUXIMAB
     Indication: HEAD AND NECK CANCER
     Route: 042
     Dates: start: 20150217

REACTIONS (11)
  - Hypokalaemia [None]
  - Hypomagnesaemia [None]
  - Blood creatinine increased [None]
  - Hyperglycaemia [None]
  - Leukopenia [None]
  - Lymphocyte count decreased [None]
  - Febrile neutropenia [None]
  - Hypocalcaemia [None]
  - Influenza B virus test positive [None]
  - Anaemia [None]
  - Hyponatraemia [None]

NARRATIVE: CASE EVENT DATE: 20150218
